FAERS Safety Report 8331463-7 (Version None)
Quarter: 2012Q2

REPORT INFORMATION
  Report Type: 
  Country: None (occurrence: None)
  Receive Date: 20120502
  Receipt Date: 20120417
  Transmission Date: 20120825
  Serious: No
  Sender: FDA-Public Use
  Company Number: US-AMGEN-USASP2012024263

PATIENT
  Age: 80 Year
  Sex: Female

DRUGS (1)
  1. ENBREL [Suspect]
     Indication: RHEUMATOID ARTHRITIS
     Dosage: UNK
     Dates: start: 20100715

REACTIONS (6)
  - CYSTITIS [None]
  - INFECTION [None]
  - FATIGUE [None]
  - MALAISE [None]
  - HYPERTENSION [None]
  - EPSTEIN-BARR VIRAEMIA [None]
